FAERS Safety Report 6591045-4 (Version None)
Quarter: 2010Q1

REPORT INFORMATION
  Report Type: 
  Country: None (occurrence: None)
  Receive Date: 20100219
  Receipt Date: 20100208
  Transmission Date: 20100710
  Serious: Yes (Other)
  Sender: FDA-Public Use
  Company Number: NL-WYE-G05536710

PATIENT
  Age: 33 Year
  Sex: Female
  Weight: 75 kg

DRUGS (3)
  1. EFFEXOR XR [Suspect]
     Indication: ANXIETY DISORDER
     Dates: start: 20080716
  2. EFFEXOR XR [Suspect]
     Indication: DEPRESSION
  3. FOLIC ACID [Concomitant]
     Indication: PROPHYLAXIS
     Dates: start: 20080915, end: 20090301

REACTIONS (3)
  - POSTPARTUM DISORDER [None]
  - POSTPARTUM HAEMORRHAGE [None]
  - PREGNANCY INDUCED HYPERTENSION [None]
